FAERS Safety Report 4546681-3 (Version None)
Quarter: 2005Q1

REPORT INFORMATION
  Report Type: 
  Country: None (occurrence: None)
  Receive Date: 20050105
  Receipt Date: 20041221
  Transmission Date: 20050727
  Serious: No
  Sender: FDA-Public Use
  Company Number: 9546

PATIENT
  Age: 14 Year
  Sex: Male

DRUGS (3)
  1. VINCRISTINE [Suspect]
     Indication: MEDULLOBLASTOMA
     Dosage: 1.5 MG/M2 PER_CYCLE INJ
  2. CISPLATIN [Concomitant]
  3. LOMUSTINE [Concomitant]

REACTIONS (4)
  - EXTREMITY NECROSIS [None]
  - HYPOTENSION [None]
  - MICROANGIOPATHY [None]
  - RAYNAUD'S PHENOMENON [None]
